FAERS Safety Report 5941544-0 (Version None)
Quarter: 2008Q4

REPORT INFORMATION
  Report Type: 
  Country: None (occurrence: None)
  Receive Date: 20081105
  Receipt Date: 20081027
  Transmission Date: 20090506
  Serious: Yes (Other)
  Sender: FDA-Public Use
  Company Number: BR-AVENTIS-200820291GDDC

PATIENT
  Age: 15 Year
  Sex: Female
  Weight: 48 kg

DRUGS (8)
  1. ALLEGRA [Suspect]
     Dosage: DOSE QUANTITY: 1
     Route: 048
     Dates: start: 20081020
  2. ALLEGRA [Suspect]
     Indication: RHINITIS
     Dosage: DOSE QUANTITY: 1
     Route: 048
     Dates: start: 20081020
  3. TRILEPTAL [Concomitant]
     Indication: CONVULSION
     Dosage: DOSE QUANTITY: 1
     Route: 048
     Dates: start: 20050101
  4. RILAN                              /00082102/ [Concomitant]
     Indication: RHINITIS
     Dosage: DOSE QUANTITY: 1
     Route: 048
     Dates: start: 20080927
  5. GINKGO BILOBA [Concomitant]
     Indication: DIZZINESS
     Dosage: DOSE QUANTITY: 1
     Route: 048
     Dates: start: 20080920
  6. ARSENICUM ALBUM [Concomitant]
     Dosage: DOSE: 4 GLOBULES
     Route: 048
  7. ALLERGY MEDICATION [Concomitant]
     Dosage: DOSE: 4 GLOBULES
     Route: 048
  8. ALLERGY MEDICATION [Concomitant]
     Dosage: DOSE: 4 GLOBULES
     Route: 048
     Dates: start: 20081024

REACTIONS (3)
  - CONDITION AGGRAVATED [None]
  - CONVULSION [None]
  - DRUG INEFFECTIVE [None]
